FAERS Safety Report 8066799-0 (Version None)
Quarter: 2012Q1

REPORT INFORMATION
  Report Type: 
  Country: None (occurrence: None)
  Receive Date: 20120124
  Receipt Date: 20120118
  Transmission Date: 20120608
  Serious: Yes (Other)
  Sender: FDA-Public Use
  Company Number: BR-ROCHE-1010880

PATIENT
  Sex: Female
  Weight: 60 kg

DRUGS (8)
  1. CALCIUM CARBONATE [Suspect]
     Indication: OSTEOPOROSIS
  2. LEXOTAN [Suspect]
     Indication: INSOMNIA
     Dosage: AT NIGHT
  3. FLUOXETINE [Concomitant]
     Indication: FIBROMYALGIA
  4. BONIVA [Suspect]
     Indication: OSTEOPOROSIS
     Route: 048
  5. OLCADIL [Concomitant]
     Indication: INSOMNIA
     Dosage: 1 TABLET AT NIGHT.
  6. METFORMIN HYDROCHLORIDE [Concomitant]
     Indication: DIABETES MELLITUS
  7. FLURAZEPAM [Concomitant]
  8. VALIUM [Suspect]
     Indication: INSOMNIA

REACTIONS (13)
  - OSTEOPOROSIS [None]
  - RENAL IMPAIRMENT [None]
  - NEPHROLITHIASIS [None]
  - SINUSITIS [None]
  - PNEUMONIA [None]
  - RHINITIS [None]
  - CARDIAC DISORDER [None]
  - GAIT DISTURBANCE [None]
  - DEPENDENCE [None]
  - HAND FRACTURE [None]
  - FRACTURE DELAYED UNION [None]
  - URETHRAL OBSTRUCTION [None]
  - FALL [None]
